FAERS Safety Report 19233773 (Version 4)
Quarter: 2022Q2

REPORT INFORMATION
  Report Type: Spontaneous
  Country: US (occurrence: None)
  Receive Date: 20210507
  Receipt Date: 20220421
  Transmission Date: 20220721
  Serious: Yes (Other)
  Sender: FDA-Public Use
  Company Number: 2021A390540

PATIENT
  Age: 60 Year
  Sex: Female
  Weight: 84.4 kg

DRUGS (47)
  1. NEXIUM [Suspect]
     Active Substance: ESOMEPRAZOLE MAGNESIUM
     Indication: Gastrooesophageal reflux disease
     Route: 048
     Dates: start: 2001, end: 2019
  2. PROTONIX [Suspect]
     Active Substance: PANTOPRAZOLE SODIUM
     Indication: Gastrooesophageal reflux disease
     Route: 065
     Dates: start: 2001, end: 2019
  3. PROTONIX [Suspect]
     Active Substance: PANTOPRAZOLE SODIUM
     Indication: Gastrooesophageal reflux disease
     Route: 065
     Dates: start: 2000, end: 2019
  4. LISINOPRIL [Concomitant]
     Active Substance: LISINOPRIL
     Indication: Hypertension
  5. LOSARTAN [Concomitant]
     Active Substance: LOSARTAN
     Indication: Hypertension
  6. AMINOCAPROIC ACID/SULFAMETHOXAZOLE SODIUM/DIPOTASSIUM GLYCYRRHIZATE/CH [Concomitant]
     Indication: Infection
  7. PENICILLIN [Concomitant]
     Active Substance: PENICILLIN
     Indication: Infection
  8. AMOXICILLIN [Concomitant]
     Active Substance: AMOXICILLIN
     Indication: Infection
  9. PRAVASTATIN [Concomitant]
     Active Substance: PRAVASTATIN
     Indication: Hyperlipidaemia
  10. ALBUTEROL [Concomitant]
     Active Substance: ALBUTEROL
  11. ALLOPURINOL [Concomitant]
     Active Substance: ALLOPURINOL
  12. BUMEX [Concomitant]
     Active Substance: BUMETANIDE
  13. PLAVIX [Concomitant]
     Active Substance: CLOPIDOGREL BISULFATE
  14. DIALYVITE [Concomitant]
     Active Substance: ASCORBIC ACID\BIOTIN\CALCIUM PANTOTHENATE\COBALAMIN\FOLIC ACID\NIACINAMIDE\PYRIDOXINE HYDROCHLORIDE\
  15. TRAZODONE [Concomitant]
     Active Substance: TRAZODONE HYDROCHLORIDE
  16. CEPHALEXIN [Concomitant]
     Active Substance: CEPHALEXIN
  17. CLINDAMYCIN [Concomitant]
     Active Substance: CLINDAMYCIN
  18. LIDOCAINE [Concomitant]
     Active Substance: LIDOCAINE
  19. VANCOMYCIN [Concomitant]
     Active Substance: VANCOMYCIN
  20. FOLIC ACID [Concomitant]
     Active Substance: FOLIC ACID
  21. METOPROLOL TARTRATE [Concomitant]
     Active Substance: METOPROLOL TARTRATE
  22. ONDANSETRON [Concomitant]
     Active Substance: ONDANSETRON
  23. DILTIAZEM [Concomitant]
     Active Substance: DILTIAZEM
  24. COMBIVENT [Concomitant]
     Active Substance: ALBUTEROL SULFATE\IPRATROPIUM BROMIDE
  25. DICYCLOMINE [Concomitant]
     Active Substance: DICYCLOMINE HYDROCHLORIDE
  26. AMIODARONE [Concomitant]
     Active Substance: AMIODARONE
  27. PREDNISONE [Concomitant]
     Active Substance: PREDNISONE
  28. ELIQUIS [Concomitant]
     Active Substance: APIXABAN
  29. METHYLPREDNISOLONE [Concomitant]
     Active Substance: METHYLPREDNISOLONE
  30. NYSTATIN [Concomitant]
     Active Substance: NYSTATIN
  31. NIFEDIPINE [Concomitant]
     Active Substance: NIFEDIPINE
  32. DOXAZOSIN [Concomitant]
     Active Substance: DOXAZOSIN MESYLATE
  33. GAVILAX [Concomitant]
     Active Substance: POLYETHYLENE GLYCOL 3350
  34. METRONIDAZOLE [Concomitant]
     Active Substance: METRONIDAZOLE
  35. RENVELA [Concomitant]
     Active Substance: SEVELAMER CARBONATE
  36. SYMBICORT [Concomitant]
     Active Substance: BUDESONIDE\FORMOTEROL FUMARATE DIHYDRATE
  37. AMOXICILLIN\CLAVULANATE POTASSIUM [Concomitant]
     Active Substance: AMOXICILLIN\CLAVULANATE POTASSIUM
  38. NICOTINE [Concomitant]
     Active Substance: NICOTINE
  39. CLOPIDOGREL [Concomitant]
     Active Substance: CLOPIDOGREL BISULFATE
  40. BUDESONIDE [Concomitant]
     Active Substance: BUDESONIDE
  41. CHANTIX [Concomitant]
     Active Substance: VARENICLINE TARTRATE
  42. FLUCONAZOLE [Concomitant]
     Active Substance: FLUCONAZOLE
  43. SUCRALFATE [Concomitant]
     Active Substance: SUCRALFATE
  44. KETOCONAZOLE [Concomitant]
     Active Substance: KETOCONAZOLE
  45. AZITHROMYCIN [Concomitant]
     Active Substance: AZITHROMYCIN
  46. AMIODARONE [Concomitant]
     Active Substance: AMIODARONE
  47. XANAX [Concomitant]
     Active Substance: ALPRAZOLAM

REACTIONS (6)
  - Chronic kidney disease [Not Recovered/Not Resolved]
  - Acute kidney injury [Unknown]
  - Renal failure [Unknown]
  - End stage renal disease [Not Recovered/Not Resolved]
  - Nephrogenic anaemia [Unknown]
  - Hyperparathyroidism secondary [Unknown]

NARRATIVE: CASE EVENT DATE: 20170101
